FAERS Safety Report 4500664-8 (Version None)
Quarter: 2004Q4

REPORT INFORMATION
  Report Type: 
  Country: None (occurrence: None)
  Receive Date: 20041112
  Receipt Date: 20041112
  Transmission Date: 20050328
  Serious: Yes (Hospitalization)
  Sender: FDA-Public Use
  Company Number: None

PATIENT
  Age: 76 Year
  Sex: Male
  Weight: 127.0072 kg

DRUGS (16)
  1. WARFARIN SODIUM [Suspect]
     Indication: ATRIAL FIBRILLATION
     Dosage: 5 MG DAILY EXCEPT 2.5 MG ON M + F  CHRONIC
  2. KEFLEX [Suspect]
     Indication: CELLULITIS
     Dosage: 500 MG BID RECENT
  3. KEFLEX [Suspect]
     Indication: ERYTHEMA
     Dosage: 500 MG BID RECENT
  4. ALLEGRA [Concomitant]
  5. LIPITOR [Concomitant]
  6. LASIX [Concomitant]
  7. PINDOLOL [Concomitant]
  8. KCL TAB [Concomitant]
  9. ELAVIL [Concomitant]
  10. AZMACORT [Concomitant]
  11. SPIRIVA [Concomitant]
  12. XANAX [Concomitant]
  13. AMBIEN [Concomitant]
  14. LANTUS [Concomitant]
  15. TYLENOL [Concomitant]
  16. STOOL SOFT [Concomitant]

REACTIONS (8)
  - EPISTAXIS [None]
  - FAECAL OCCULT BLOOD POSITIVE [None]
  - HAEMATURIA [None]
  - HYPERKALAEMIA [None]
  - HYPOGLYCAEMIA [None]
  - INTERNATIONAL NORMALISED RATIO INCREASED [None]
  - LOBAR PNEUMONIA [None]
  - MOUTH HAEMORRHAGE [None]
